FAERS Safety Report 5661161-X (Version None)
Quarter: 2008Q1

REPORT INFORMATION
  Report Type: 
  Country: None (occurrence: None)
  Receive Date: 20080305
  Receipt Date: 20080222
  Transmission Date: 20080703
  Serious: Yes (Other)
  Sender: FDA-Public Use
  Company Number: 2008004521

PATIENT
  Age: 33 Year
  Sex: Male

DRUGS (2)
  1. NICORETTE [Suspect]
     Dosage: TRANSDERMAL
     Route: 062
     Dates: start: 20080222
  2. SIMVASTATIN [Concomitant]

REACTIONS (3)
  - DYSPNOEA [None]
  - ORAL INTAKE REDUCED [None]
  - PHARYNGEAL OEDEMA [None]
